FAERS Safety Report 6123216-5 (Version None)
Quarter: 2009Q1

REPORT INFORMATION
  Report Type: 
  Country: None (occurrence: None)
  Receive Date: 20090318
  Receipt Date: 20090215
  Transmission Date: 20090719
  Serious: No
  Sender: FDA-Public Use
  Company Number: US-ABBOTT-09P-163-0557883-00

PATIENT
  Sex: Female
  Weight: 86.26 kg

DRUGS (1)
  1. BIAXIN XL [Suspect]
     Indication: BRONCHITIS
     Route: 048
     Dates: start: 20090215

REACTIONS (2)
  - DYSGEUSIA [None]
  - GENITAL HAEMORRHAGE [None]
